FAERS Safety Report 24328186 (Version 2)
Quarter: 2024Q4

REPORT INFORMATION
  Report Type: Spontaneous
  Country: FR (occurrence: FR)
  Receive Date: 20240917
  Receipt Date: 20241011
  Transmission Date: 20250114
  Serious: Yes (Other)
  Sender: WAYLIS
  Company Number: None

PATIENT
  Age: 38 Year
  Sex: Female
  Weight: 55 kg

DRUGS (13)
  1. VALIUM [Suspect]
     Active Substance: DIAZEPAM
     Indication: Anxiety
     Route: 050
     Dates: start: 20240618, end: 20240619
  2. VALIUM [Suspect]
     Active Substance: DIAZEPAM
     Route: 050
     Dates: start: 20240620, end: 20240705
  3. CYAMEMAZINE [Suspect]
     Active Substance: CYAMEMAZINE
     Indication: Anxiety
     Route: 050
     Dates: start: 20240704, end: 20240705
  4. CYAMEMAZINE [Suspect]
     Active Substance: CYAMEMAZINE
     Indication: Major depression
     Route: 050
     Dates: start: 20240623, end: 20240626
  5. CYAMEMAZINE [Suspect]
     Active Substance: CYAMEMAZINE
     Route: 050
     Dates: start: 20240629, end: 20240703
  6. CYAMEMAZINE [Suspect]
     Active Substance: CYAMEMAZINE
     Route: 050
     Dates: start: 20240627, end: 20240628
  7. DAFALGAN [Concomitant]
     Active Substance: ACETAMINOPHEN
     Indication: Product used for unknown indication
  8. PRINCI B, comprime pellicule [Concomitant]
     Indication: Product used for unknown indication
     Dosage: 1-0-1
     Route: 050
     Dates: start: 20240618
  9. HYDROXYZINE HYDROCHLORIDE [Concomitant]
     Active Substance: HYDROXYZINE HYDROCHLORIDE
     Indication: Product used for unknown indication
     Dosage: ; IN TOTAL
     Route: 050
     Dates: start: 20240702, end: 20240702
  10. SERTRALINE HYDROCHLORIDE [Concomitant]
     Active Substance: SERTRALINE HYDROCHLORIDE
     Indication: Product used for unknown indication
     Route: 050
     Dates: start: 20240629
  11. SERTRALINE HYDROCHLORIDE [Concomitant]
     Active Substance: SERTRALINE HYDROCHLORIDE
     Route: 050
     Dates: start: 20240619, end: 20240628
  12. SERTRALINE HYDROCHLORIDE [Concomitant]
     Active Substance: SERTRALINE HYDROCHLORIDE
     Route: 050
     Dates: start: 202403, end: 20240618
  13. DOLIPRANE [Concomitant]
     Active Substance: ACETAMINOPHEN
     Indication: Product used for unknown indication

REACTIONS (1)
  - Hepatic cytolysis [Recovered/Resolved]

NARRATIVE: CASE EVENT DATE: 20240704
